FAERS Safety Report 6535118-0 (Version None)
Quarter: 2010Q1

REPORT INFORMATION
  Report Type: 
  Country: None (occurrence: None)
  Receive Date: 20100113
  Receipt Date: 20100104
  Transmission Date: 20100710
  Serious: Yes (Hospitalization)
  Sender: FDA-Public Use
  Company Number: US-BIOGENIDEC-2009BI034452

PATIENT
  Age: 60 Year
  Sex: Female

DRUGS (1)
  1. TYSABRI [Suspect]
     Indication: MULTIPLE SCLEROSIS
     Route: 042
     Dates: start: 20070501, end: 20091001

REACTIONS (8)
  - ANKLE FRACTURE [None]
  - CONSTIPATION [None]
  - COORDINATION ABNORMAL [None]
  - ENDOMETRIOSIS [None]
  - FALL [None]
  - INSOMNIA [None]
  - NAUSEA [None]
  - URINARY TRACT INFECTION [None]
